FAERS Safety Report 7251109-9 (Version None)
Quarter: 2011Q1

REPORT INFORMATION
  Report Type: 
  Country: None (occurrence: None)
  Receive Date: 20110128
  Receipt Date: 20110124
  Transmission Date: 20110831
  Serious: Yes (Other)
  Sender: FDA-Public Use
  Company Number: US-PFIZER INC-2011016942

PATIENT
  Sex: Female
  Weight: 62.585 kg

DRUGS (5)
  1. LIPITOR [Suspect]
     Dosage: 80 MG, DAILY
     Route: 048
  2. DRONEDARONE HYDROCHLORIDE [Concomitant]
     Indication: CARDIAC FIBRILLATION
     Dosage: 400 MG, 2X/DAY
     Route: 048
     Dates: end: 20110101
  3. LIPITOR [Suspect]
     Indication: BLOOD CHOLESTEROL INCREASED
     Dosage: 20 MG, DAILY
     Route: 048
  4. VALSARTAN [Concomitant]
     Indication: HYPERTENSION
     Dosage: 80 MG, DAILY
     Route: 048
  5. NIASPAN [Concomitant]
     Indication: HIGH DENSITY LIPOPROTEIN DECREASED
     Dosage: 1000 MG, DAILY
     Route: 048

REACTIONS (2)
  - FALL [None]
  - MUSCULAR WEAKNESS [None]
